FAERS Safety Report 8073894-9 (Version None)
Quarter: 2012Q1

REPORT INFORMATION
  Report Type: 
  Country: None (occurrence: None)
  Receive Date: 20120126
  Receipt Date: 20120116
  Transmission Date: 20120608
  Serious: Yes (Death, Hospitalization)
  Sender: FDA-Public Use
  Company Number: FR-TEVA-318484ISR

PATIENT
  Age: 50 Year
  Sex: Female

DRUGS (2)
  1. CARBOPLATIN [Suspect]
     Indication: MALIGNANT PERITONEAL NEOPLASM
     Route: 065
  2. PACLITAXEL [Concomitant]
     Indication: MALIGNANT PERITONEAL NEOPLASM
     Route: 065

REACTIONS (13)
  - TACHYCARDIA [None]
  - MITOCHONDRIAL CYTOPATHY [None]
  - FLUID RETENTION [None]
  - ASTHENIA [None]
  - TACHYPNOEA [None]
  - DYSPNOEA [None]
  - ASCITES [None]
  - HYPOTHERMIA [None]
  - HYPOTENSION [None]
  - LACTIC ACIDOSIS [None]
  - NEUROTOXICITY [None]
  - CONFUSIONAL STATE [None]
  - ABDOMINAL PAIN [None]
